FAERS Safety Report 7285147-7 (Version None)
Quarter: 2011Q1

REPORT INFORMATION
  Report Type: 
  Country: None (occurrence: None)
  Receive Date: 20110210
  Receipt Date: 20110208
  Transmission Date: 20110831
  Serious: Yes (Death)
  Sender: FDA-Public Use
  Company Number: PHHY2011US10348

PATIENT
  Sex: Male
  Weight: 67.59 kg

DRUGS (1)
  1. EXJADE [Suspect]
     Indication: ACUTE MYELOID LEUKAEMIA
     Dosage: 750 MG, DAILY
     Route: 048
     Dates: start: 20100127, end: 20110110

REACTIONS (1)
  - DEATH [None]
